FAERS Safety Report 11529769 (Version 1)
Quarter: 2015Q3

REPORT INFORMATION
  Report Type: Spontaneous
  Country: NO (occurrence: NO)
  Receive Date: 20150921
  Receipt Date: 20150921
  Transmission Date: 20151125
  Serious: No
  Sender: FDA-Public Use
  Company Number: NO-JNJFOC-20150912945

PATIENT
  Age: 61 Year
  Sex: Female

DRUGS (2)
  1. DUROGESIC [Suspect]
     Active Substance: FENTANYL
     Indication: RADICULOPATHY
     Route: 062
  2. DUROGESIC [Suspect]
     Active Substance: FENTANYL
     Indication: PAIN
     Route: 062

REACTIONS (5)
  - Drug ineffective [Unknown]
  - Scar [Unknown]
  - Wrong technique in product usage process [Unknown]
  - Wound [Unknown]
  - Product quality issue [Unknown]
